FAERS Safety Report 21931207 (Version 5)
Quarter: 2023Q2

REPORT INFORMATION
  Report Type: Report from Study
  Country: US (occurrence: US)
  Receive Date: 20230131
  Receipt Date: 20230629
  Transmission Date: 20230721
  Serious: Yes (Other)
  Sender: FDA-Public Use
  Company Number: US-002147023-NVSC2023US017757

PATIENT
  Age: 38 Year
  Sex: Female

DRUGS (2)
  1. KESIMPTA [Suspect]
     Active Substance: OFATUMUMAB
     Indication: Multiple sclerosis
     Dosage: UNK, QMO
     Route: 065
     Dates: start: 20230102
  2. KESIMPTA [Suspect]
     Active Substance: OFATUMUMAB
     Dosage: UNK
     Route: 065
     Dates: start: 20230116

REACTIONS (4)
  - Multiple sclerosis relapse [Unknown]
  - Chest pain [Unknown]
  - Anxiety [Unknown]
  - Product supply issue [Unknown]

NARRATIVE: CASE EVENT DATE: 20230101
